FAERS Safety Report 10543454 (Version 2)
Quarter: 2014Q4

REPORT INFORMATION
  Report Type: Spontaneous
  Country: US (occurrence: US)
  Receive Date: 20141027
  Receipt Date: 20141120
  Transmission Date: 20150529
  Serious: No
  Sender: FDA-Public Use
  Company Number: US-PFIZER INC-2014290744

PATIENT
  Sex: Female
  Weight: 75 kg

DRUGS (6)
  1. ESTRADIOL. [Concomitant]
     Active Substance: ESTRADIOL
     Dosage: 0.05 MG, 2X/WEEK
  2. PROMETRIUM [Concomitant]
     Active Substance: PROGESTERONE
     Dosage: 200 MG, 1X/DAY
  3. CYMBALTA [Concomitant]
     Active Substance: DULOXETINE HYDROCHLORIDE
     Dosage: 60 MG, 1X/DAY
  4. CELEBREX [Suspect]
     Active Substance: CELECOXIB
     Indication: OSTEOARTHRITIS
     Dosage: 200 MG, 1X/DAY
     Dates: start: 2008
  5. ZIAC [Concomitant]
     Active Substance: BISOPROLOL FUMARATE\HYDROCHLOROTHIAZIDE
     Indication: BLOOD PRESSURE
     Dosage: 5-6.25, MG
  6. WELLBUTRIN [Concomitant]
     Active Substance: BUPROPION HYDROCHLORIDE
     Dosage: 350 MG, 1X/DAY

REACTIONS (1)
  - Abdominal discomfort [Unknown]
